FAERS Safety Report 6732014-0 (Version None)
Quarter: 2010Q2

REPORT INFORMATION
  Report Type: 
  Country: None (occurrence: None)
  Receive Date: 20100519
  Receipt Date: 20100507
  Transmission Date: 20101027
  Serious: Yes (Other)
  Sender: FDA-Public Use
  Company Number: PHHY2010LB29787

PATIENT
  Age: 83 Year
  Sex: Female
  Weight: 48 kg

DRUGS (4)
  1. EXELON [Suspect]
     Indication: DEMENTIA ALZHEIMER'S TYPE
     Dosage: 5 MG, UNK
     Route: 062
     Dates: start: 20100320, end: 20100412
  2. VITAMIN D [Concomitant]
  3. ACTONEL [Concomitant]
  4. ZOLPIDEM [Concomitant]

REACTIONS (1)
  - CUTANEOUS LUPUS ERYTHEMATOSUS [None]
